FAERS Safety Report 19080760 (Version 1)
Quarter: 2021Q1

REPORT INFORMATION
  Report Type: Spontaneous
  Country: DE (occurrence: DE)
  Receive Date: 20210331
  Receipt Date: 20210331
  Transmission Date: 20210420
  Serious: Yes (Hospitalization, Other)
  Sender: FDA-Public Use
  Company Number: DE-JNJFOC-20210351884

PATIENT
  Sex: Female
  Weight: 57 kg

DRUGS (3)
  1. IBUPROFEN. [Suspect]
     Active Substance: IBUPROFEN
     Indication: PAIN
     Dosage: UNK
     Route: 065
     Dates: start: 202102
  2. DESOGESTREL ARISTO [Concomitant]
     Active Substance: DESOGESTREL
     Indication: PRODUCT USED FOR UNKNOWN INDICATION
     Dosage: DESOGESTREL: 75UG
     Route: 065
     Dates: start: 201805, end: 202103
  3. MONO EMBOLEX [Suspect]
     Active Substance: CERTOPARIN SODIUM
     Indication: THROMBOSIS PROPHYLAXIS
     Dosage: UNCLEAR BUT MOST LIKELY SINCE OPERATION
     Route: 065
     Dates: start: 202102

REACTIONS (4)
  - Pulmonary embolism [Unknown]
  - Hypercoagulation [Unknown]
  - Deep vein thrombosis [Unknown]
  - Pneumonia [Unknown]

NARRATIVE: CASE EVENT DATE: 20210228
